FAERS Safety Report 12873110 (Version 1)
Quarter: 2016Q4

REPORT INFORMATION
  Report Type: Spontaneous
  Country: US (occurrence: US)
  Receive Date: 20161021
  Receipt Date: 20161021
  Transmission Date: 20170207
  Serious: Yes (Death)
  Sender: FDA-Public Use
  Company Number: US-TAIHO ONCOLOGY INC-EU-2016-01643

PATIENT
  Age: 51 Year
  Sex: Female

DRUGS (2)
  1. LONSURF [Suspect]
     Active Substance: TIPIRACIL HYDROCHLORIDE\TRIFLURIDINE
     Indication: COLON CANCER
     Dosage: CYCLE 1; 60MG IN AM AND 40MG IN PM
     Route: 048
     Dates: start: 20160621, end: 20160704
  2. SUBSYS [Concomitant]
     Active Substance: FENTANYL
     Indication: PAIN
     Dates: start: 20160524

REACTIONS (2)
  - Death [Fatal]
  - Haematemesis [Recovered/Resolved]

NARRATIVE: CASE EVENT DATE: 2016
